FAERS Safety Report 22196631 (Version 1)
Quarter: 2023Q2

REPORT INFORMATION
  Report Type: Spontaneous
  Country: FR (occurrence: FR)
  Receive Date: 20230411
  Receipt Date: 20230411
  Transmission Date: 20230722
  Serious: Yes (Life-Threatening, Hospitalization, Other)
  Sender: FDA-Public Use
  Company Number: FR-CPL-003340

PATIENT
  Age: 53 Year
  Sex: Female

DRUGS (2)
  1. VENLAFAXINE [Suspect]
     Active Substance: VENLAFAXINE HYDROCHLORIDE
     Indication: Depression
  2. OXAZEPAM [Suspect]
     Active Substance: OXAZEPAM
     Indication: Depression

REACTIONS (6)
  - Cardiogenic shock [Recovered/Resolved]
  - Toxicity to various agents [Unknown]
  - Sinus tachycardia [Recovered/Resolved]
  - Acute kidney injury [Recovered/Resolved]
  - Pneumonia aspiration [Recovered/Resolved]
  - Multiple organ dysfunction syndrome [Recovered/Resolved]
